FAERS Safety Report 4393883-5 (Version None)
Quarter: 2004Q3

REPORT INFORMATION
  Report Type: 
  Country: None (occurrence: None)
  Receive Date: 20040709
  Receipt Date: 20040630
  Transmission Date: 20050211
  Serious: Yes (Death, Hospitalization)
  Sender: FDA-Public Use
  Company Number: PHHO2004AR09275

PATIENT
  Age: 30 Year
  Sex: Female

DRUGS (3)
  1. NEORAL [Suspect]
     Indication: LIVER TRANSPLANT
     Dosage: 200 MG / DAY
     Route: 048
     Dates: start: 19990424, end: 20040506
  2. PREDNISONE [Suspect]
     Indication: LIVER TRANSPLANT
     Dosage: 4 MG / DAY
     Route: 048
     Dates: start: 19990424
  3. AZATHIOPRINE [Suspect]
     Indication: LIVER TRANSPLANT
     Dosage: 50 MG / DAY
     Route: 048
     Dates: start: 19990424, end: 20040506

REACTIONS (7)
  - ASTHENIA [None]
  - COUGH [None]
  - PANCYTOPENIA [None]
  - PYREXIA [None]
  - RENAL IMPAIRMENT [None]
  - TUBERCULOSIS [None]
  - WEIGHT DECREASED [None]
